FAERS Safety Report 6992952-0 (Version None)
Quarter: 2010Q3

REPORT INFORMATION
  Report Type: 
  Country: None (occurrence: None)
  Receive Date: 20100916
  Receipt Date: 20100916
  Transmission Date: 20110219
  Serious: Yes (Life-Threatening)
  Sender: FDA-Public Use
  Company Number: None

PATIENT
  Age: 47 Year
  Sex: Female
  Weight: 136.9863 kg

DRUGS (2)
  1. TYLENOL W/ CODEINE NO. 3 [Suspect]
     Indication: PAIN
     Dosage: 2 Q 4 HOURS OTHER
     Route: 050
     Dates: start: 20100801, end: 20100815
  2. TYLENOL W/ CODEINE NO. 3 [Suspect]
     Indication: ANXIETY

REACTIONS (1)
  - FALL [None]
